FAERS Safety Report 19741770 (Version 9)
Quarter: 2021Q4

REPORT INFORMATION
  Report Type: Report from Study
  Country: US (occurrence: US)
  Receive Date: 20210825
  Receipt Date: 20211030
  Transmission Date: 20220304
  Serious: No
  Sender: FDA-Public Use
  Company Number: NVSC2021US182005

PATIENT
  Sex: Female
  Weight: 74.83 kg

DRUGS (9)
  1. TREPROSTINIL [Suspect]
     Active Substance: TREPROSTINIL
     Indication: Pulmonary arterial hypertension
     Dosage: 10 NG/KG/MIN, CONT
     Route: 058
     Dates: start: 20210802
  2. TREPROSTINIL [Suspect]
     Active Substance: TREPROSTINIL
     Dosage: 13 NG/KG/MIN, CONT
     Route: 058
  3. TREPROSTINIL [Suspect]
     Active Substance: TREPROSTINIL
     Dosage: 15 NG/KG/MIN CONT
     Route: 058
     Dates: start: 20210822
  4. TREPROSTINIL [Suspect]
     Active Substance: TREPROSTINIL
     Dosage: 18 NG/KG/MIN, CONT
     Route: 058
  5. TREPROSTINIL [Suspect]
     Active Substance: TREPROSTINIL
     Dosage: 17 NG/KG/MIN, CONT
     Route: 058
  6. TREPROSTINIL [Suspect]
     Active Substance: TREPROSTINIL
     Dosage: 17 NG/KG/MIN, CONT
     Route: 058
     Dates: start: 20210802
  7. TREPROSTINIL [Suspect]
     Active Substance: TREPROSTINIL
     Dosage: UNK
     Route: 065
  8. SILDENAFIL CITRATE [Concomitant]
     Active Substance: SILDENAFIL CITRATE
     Indication: Product used for unknown indication
     Dosage: UNK
     Route: 065
  9. UPTRAVI [Concomitant]
     Active Substance: SELEXIPAG
     Indication: Product used for unknown indication
     Route: 065

REACTIONS (18)
  - Neck pain [Unknown]
  - Back pain [Unknown]
  - Fluid retention [Unknown]
  - Fall [Unknown]
  - Skin abrasion [Unknown]
  - Scab [Recovering/Resolving]
  - Faeces discoloured [Unknown]
  - Infusion site infection [Unknown]
  - Oedema peripheral [Unknown]
  - Headache [Unknown]
  - Pruritus [Unknown]
  - Nausea [Unknown]
  - Diarrhoea [Unknown]
  - Infusion site pain [Unknown]
  - Infusion site discolouration [Unknown]
  - Infusion site erythema [Unknown]
  - Myalgia [Unknown]
  - Asthenia [Unknown]
